FAERS Safety Report 9372839 (Version 2)
Quarter: 2013Q3

REPORT INFORMATION
  Report Type: Spontaneous
  Country: SE (occurrence: SE)
  Receive Date: 20130627
  Receipt Date: 20130704
  Transmission Date: 20140515
  Serious: Yes (Other)
  Sender: FDA-Public Use
  Company Number: SE-JNJFOC-20130614873

PATIENT
  Age: 23 Year
  Sex: Female

DRUGS (1)
  1. CONCERTA [Suspect]
     Indication: ATTENTION DEFICIT/HYPERACTIVITY DISORDER
     Dosage: 1 TABLET OF 54 MG IN THE MORNING AND ONE TABLET OF 18 MG AT LUNCH.
     Route: 048

REACTIONS (3)
  - Withdrawal syndrome [Unknown]
  - Headache [Unknown]
  - Discomfort [Unknown]
